FAERS Safety Report 10177755 (Version 2)
Quarter: 2014Q2

REPORT INFORMATION
  Report Type: Report from Study
  Country: US (occurrence: US)
  Receive Date: 20140516
  Receipt Date: 20140523
  Transmission Date: 20141212
  Serious: Yes (Hospitalization)
  Sender: FDA-Public Use
  Company Number: US-ACTELION-A-NJ2014-98783

PATIENT
  Age: 59 Year
  Sex: Male

DRUGS (5)
  1. TRACLEER [Suspect]
     Indication: PULMONARY ARTERIAL HYPERTENSION
     Dosage: 125 MG, BID
     Route: 048
     Dates: start: 200901
  2. TRACLEER [Suspect]
     Dosage: 62.5 MG, BID
     Route: 048
     Dates: start: 20090818
  3. TRACLEER [Suspect]
     Dosage: 125 UNK, UNK
     Route: 048
     Dates: start: 2009
  4. ADCIRCA [Concomitant]
  5. COUMADIN [Concomitant]

REACTIONS (1)
  - Lung transplant [Unknown]
